FAERS Safety Report 12633400 (Version 3)
Quarter: 2016Q3

REPORT INFORMATION
  Report Type: Spontaneous
  Country: US (occurrence: US)
  Receive Date: 20160808
  Receipt Date: 20160808
  Transmission Date: 20161109
  Serious: No
  Sender: FDA-Public Use
  Company Number: US-BEH-2016060708

PATIENT
  Sex: Female
  Weight: 87 kg

DRUGS (8)
  1. EPIPEN [Concomitant]
     Active Substance: EPINEPHRINE
  2. LISINOPRIL. [Concomitant]
     Active Substance: LISINOPRIL
  3. CARVEDIOL [Concomitant]
     Active Substance: CARVEDILOL
  4. HIZENTRA [Suspect]
     Active Substance: HUMAN IMMUNOGLOBULIN G
     Indication: CONGENITAL HYPOGAMMAGLOBULINAEMIA
     Route: 058
     Dates: start: 20140506
  5. ACETAMINOPHEN. [Concomitant]
     Active Substance: ACETAMINOPHEN
  6. LMX [Concomitant]
     Active Substance: LIDOCAINE
  7. EXEMESTANE. [Concomitant]
     Active Substance: EXEMESTANE
  8. LEVOTHYROXINE. [Concomitant]
     Active Substance: LEVOTHYROXINE

REACTIONS (2)
  - Infection [Unknown]
  - Nasopharyngitis [Unknown]
